FAERS Safety Report 6526921-1 (Version None)
Quarter: 2010Q1

REPORT INFORMATION
  Report Type: 
  Country: None (occurrence: None)
  Receive Date: 20100104
  Receipt Date: 20100104
  Transmission Date: 20100710
  Serious: Yes (Death)
  Sender: FDA-Public Use
  Company Number: None

PATIENT
  Age: 53 Year
  Sex: Male
  Weight: 57.6068 kg

DRUGS (10)
  1. RASBURICASE -ELITEK-R-- 1.5MG VIAL SANOFI AVENTIS [Suspect]
     Indication: HYPERURICAEMIA
     Dosage: 12MG OTO IV
     Route: 042
     Dates: start: 20090707, end: 20090707
  2. ALBUTEROL-IPRATROPIUM AEROSOL TREATMENT [Concomitant]
  3. DILTIAZEM [Concomitant]
  4. SIMVASTATIN [Concomitant]
  5. METOPROLOL TARTRATE [Concomitant]
  6. ALENDRONATE SODIUM [Concomitant]
  7. ALLOPURINOL [Concomitant]
  8. CYCLOBENZAPRINE [Concomitant]
  9. MAGNESSIUM OXIDE [Concomitant]
  10. MORPHINE [Concomitant]

REACTIONS (4)
  - ACUTE RESPIRATORY FAILURE [None]
  - BLOOD METHAEMOGLOBIN PRESENT [None]
  - MULTI-ORGAN FAILURE [None]
  - SHOCK [None]
